FAERS Safety Report 6021937-6 (Version None)
Quarter: 2008Q4

REPORT INFORMATION
  Report Type: 
  Country: None (occurrence: None)
  Receive Date: 20081229
  Receipt Date: 20081218
  Transmission Date: 20090506
  Serious: Yes (Hospitalization)
  Sender: FDA-Public Use
  Company Number: DE-ROCHE-482115

PATIENT
  Sex: Female
  Weight: 65 kg

DRUGS (19)
  1. CAPECITABINE [Suspect]
     Indication: BREAST CANCER METASTATIC
     Dosage: FREQUENCY REPORTED AS DAY 1-14 EVERY 21 DAYS.
     Route: 048
     Dates: start: 20070404, end: 20070424
  2. CAPECITABINE [Suspect]
     Dosage: FREQUENCY REPORTED AS D1 TO 14 EVERY THREE WEEKS
     Route: 048
     Dates: start: 20070518, end: 20070531
  3. PACLITAXEL [Suspect]
     Indication: BREAST CANCER METASTATIC
     Route: 042
     Dates: start: 20070404
  4. PACLITAXEL [Suspect]
     Route: 042
     Dates: start: 20070601, end: 20070601
  5. PACLITAXEL [Suspect]
     Route: 042
     Dates: end: 20070612
  6. EPIRUBICIN [Suspect]
     Indication: BREAST CANCER METASTATIC
     Route: 042
     Dates: start: 20070117, end: 20070321
  7. EPIRUBICIN [Suspect]
     Dosage: TREATMENT STOPPED AFTER DOSE OF SECOND CYCLE
     Route: 042
     Dates: end: 20070531
  8. CYCLOPHOSPHAMIDE [Suspect]
     Indication: BREAST CANCER METASTATIC
     Route: 042
     Dates: start: 20070117, end: 20070321
  9. CYCLOPHOSPHAMIDE [Suspect]
     Dosage: TREATMENT STOPPED AFTER DOSE OF SECOND CYCLE
     Route: 042
     Dates: end: 20070531
  10. DARBEPOETIN ALFA [Suspect]
     Dosage: FREQUENCY REPORTED AS ^1X^
     Route: 058
     Dates: start: 20070131, end: 20070131
  11. NEULASTA [Concomitant]
     Dosage: FREQUENCY REPORTED AS ^1X^
     Route: 058
     Dates: start: 20070201, end: 20070201
  12. CIPROFLOXACIN [Concomitant]
     Indication: PROPHYLAXIS
     Dosage: REGIMEN REPORTED AS 500 MG X 2, FREQUENCY OF ^1X^
     Route: 048
     Dates: start: 20070205, end: 20070205
  13. METOCLOPRAMIDE HYDROCHLORIDE [Concomitant]
     Route: 048
     Dates: start: 20070117
  14. FORTECORTIN [Concomitant]
     Route: 048
     Dates: start: 20070117, end: 20070119
  15. UROMITEXAN [Concomitant]
     Route: 048
     Dates: start: 20070117, end: 20070117
  16. NEXIUM [Concomitant]
     Route: 048
     Dates: start: 20070117
  17. FRAXIPARIN [Concomitant]
     Dates: start: 20070413
  18. BISOPROLOL FUMARATE [Concomitant]
  19. CORVO [Concomitant]
     Dosage: DRUG NAME REPORTED AS CARVO.

REACTIONS (1)
  - MASTITIS [None]
